FAERS Safety Report 9738487 (Version 5)
Quarter: 2014Q1

REPORT INFORMATION
  Report Type: Spontaneous
  Country: IT (occurrence: IT)
  Receive Date: 20131208
  Receipt Date: 20140127
  Transmission Date: 20141002
  Serious: Yes (Hospitalization, Other)
  Sender: FDA-Public Use
  Company Number: IT-BRISTOL-MYERS SQUIBB COMPANY-19868637

PATIENT
  Age: 77 Year
  Sex: Female

DRUGS (4)
  1. COUMADIN TABS 5 MG [Suspect]
     Indication: ANTICOAGULANT THERAPY
     Route: 048
     Dates: start: 20080101, end: 20131022
  2. LASIX [Concomitant]
     Dosage: TABS, 1 UNIT DAILY
     Route: 048
  3. TAREG [Concomitant]
     Route: 048
  4. CONGESCOR [Concomitant]

REACTIONS (2)
  - Melaena [Recovering/Resolving]
  - Duodenal ulcer [Unknown]
